FAERS Safety Report 8141600-5 (Version None)
Quarter: 2012Q1

REPORT INFORMATION
  Report Type: 
  Country: None (occurrence: None)
  Receive Date: 20120103
  Receipt Date: 20110912
  Transmission Date: 20120608
  Serious: No
  Sender: FDA-Public Use
  Company Number: AE-2011-001464

PATIENT
  Age: 64 Year
  Sex: Male
  Weight: 95.2554 kg

DRUGS (13)
  1. TERAZOSIN HCL [Concomitant]
  2. METOPROLOL [Concomitant]
  3. INCIVEK [Suspect]
     Dosage: 2250 MG (750 MG,3 IN 1 D), ORAL
     Route: 048
     Dates: start: 20110901
  4. RIBAVIRIN [Concomitant]
  5. CRESTOR [Concomitant]
  6. LOVAZA (FISH OIL) [Concomitant]
  7. PEGASYS [Concomitant]
  8. ALLOPURINOL [Concomitant]
  9. ASPIRIN [Concomitant]
  10. ZENPEP (PANCRELIPASE) [Concomitant]
  11. OMEPRAZOLE [Concomitant]
  12. NASONEX [Concomitant]
  13. PLAVIX [Concomitant]

REACTIONS (3)
  - DYSGEUSIA [None]
  - PRURITUS [None]
  - HAEMORRHOIDS [None]
